FAERS Safety Report 8559301-8 (Version None)
Quarter: 2012Q3

REPORT INFORMATION
  Report Type: 
  Country: None (occurrence: None)
  Receive Date: 20120802
  Receipt Date: 20120730
  Transmission Date: 20120928
  Serious: Yes (Other)
  Sender: FDA-Public Use
  Company Number: PHHY2012FR057607

PATIENT
  Sex: Female

DRUGS (9)
  1. VALACYCLOVIR HYDROCHLORIDE [Concomitant]
     Dosage: 500 MG, DAILY
     Dates: start: 20120628
  2. AREDIA [Suspect]
     Indication: MULTIPLE MYELOMA
  3. BACTRIM DS [Concomitant]
     Indication: MULTIPLE MYELOMA
     Route: 048
     Dates: start: 20120201, end: 20120703
  4. REVLIMID [Suspect]
     Indication: MULTIPLE MYELOMA
     Dosage: 14 DF, QMO
     Route: 048
     Dates: start: 20120201
  5. PENTACARINAT [Concomitant]
  6. OXAZEPAM [Suspect]
     Indication: MULTIPLE MYELOMA
     Route: 048
     Dates: start: 20120101
  7. AMOXICILLIN [Suspect]
     Indication: MULTIPLE MYELOMA
     Route: 048
  8. NEXIUM [Suspect]
     Indication: MULTIPLE MYELOMA
     Route: 048
  9. VALACYCLOVIR HYDROCHLORIDE [Concomitant]
     Indication: MULTIPLE MYELOMA
     Route: 048
     Dates: start: 20120101, end: 20120618

REACTIONS (4)
  - SKIN LESION [None]
  - PURPURA [None]
  - RASH MACULO-PAPULAR [None]
  - RASH ERYTHEMATOUS [None]
